FAERS Safety Report 13064684 (Version 1)
Quarter: 2016Q4

REPORT INFORMATION
  Report Type: Spontaneous
  Country: US (occurrence: US)
  Receive Date: 20161226
  Receipt Date: 20161226
  Transmission Date: 20170207
  Serious: Yes (Other)
  Sender: FDA-Public Use
  Company Number: None

PATIENT
  Age: 37 Year
  Sex: Female
  Weight: 60.7 kg

DRUGS (3)
  1. FOCALIN [Concomitant]
     Active Substance: DEXMETHYLPHENIDATE HYDROCHLORIDE
  2. FLUOXETINE [Suspect]
     Active Substance: FLUOXETINE HYDROCHLORIDE
     Indication: ANXIETY
     Dosage: QUANTITY:1 CAPSULE(S); ORAL?
     Route: 048
     Dates: start: 20161224, end: 20161225
  3. FLUOXETINE [Suspect]
     Active Substance: FLUOXETINE HYDROCHLORIDE
     Indication: DEPRESSION
     Dosage: QUANTITY:1 CAPSULE(S); ORAL?
     Route: 048
     Dates: start: 20161224, end: 20161225

REACTIONS (3)
  - Product substitution issue [None]
  - Headache [None]
  - Depression [None]

NARRATIVE: CASE EVENT DATE: 20161224
